FAERS Safety Report 4910315-6 (Version None)
Quarter: 2006Q1

REPORT INFORMATION
  Report Type: 
  Country: None (occurrence: None)
  Receive Date: 20060209
  Receipt Date: 20060125
  Transmission Date: 20060701
  Serious: Yes (Hospitalization)
  Sender: FDA-Public Use
  Company Number: JP_051007839

PATIENT
  Age: 56 Year
  Sex: Male
  Weight: 40.4 kg

DRUGS (6)
  1. ZYPREXA [Suspect]
     Indication: SCHIZOPHRENIA
     Dosage: 20 MG, DAILY (1/D), ORAL
     Route: 048
     Dates: end: 20040713
  2. CLONAZEPAM [Concomitant]
  3. VALPROATE SODIUM [Concomitant]
  4. LITHIUM CARBONATE [Concomitant]
  5. DORAL [Concomitant]
  6. SILECE (FLUNITRAZEPAM) [Concomitant]

REACTIONS (4)
  - DYSPHAGIA [None]
  - OXYGEN SATURATION DECREASED [None]
  - PNEUMONIA ASPIRATION [None]
  - PYREXIA [None]
